FAERS Safety Report 9571046 (Version 1)
Quarter: 2013Q4

REPORT INFORMATION
  Report Type: Spontaneous
  Country: CA (occurrence: CA)
  Receive Date: 20131001
  Receipt Date: 20131001
  Transmission Date: 20140711
  Serious: Yes (Hospitalization)
  Sender: FDA-Public Use
  Company Number: CA-ROCHE-1283227

PATIENT
  Age: 35 Year
  Sex: Female
  Weight: 75.82 kg

DRUGS (2)
  1. NAPROSYN [Suspect]
     Indication: PRODUCT USED FOR UNKNOWN INDICATION
     Dosage: THERAPY DURATION: 91.0 DAYS
     Route: 065
  2. CELEBREX [Suspect]
     Indication: PRODUCT USED FOR UNKNOWN INDICATION
     Dosage: THERAPY DURATION: 48.0 DAYS
     Route: 065

REACTIONS (1)
  - Colitis ischaemic [Unknown]
